FAERS Safety Report 16269295 (Version 1)
Quarter: 2019Q2

REPORT INFORMATION
  Report Type: Spontaneous
  Country: US (occurrence: US)
  Receive Date: 20190503
  Receipt Date: 20190503
  Transmission Date: 20190711
  Serious: Yes (Other)
  Sender: FDA-Public Use
  Company Number: US-BAYER-2019-085113

PATIENT
  Age: 13 Year
  Sex: Female

DRUGS (1)
  1. AFRIN ORIGINAL [Suspect]
     Active Substance: OXYMETAZOLINE HYDROCHLORIDE
     Dosage: UNK UNK, QD
     Route: 045

REACTIONS (3)
  - Incorrect product administration duration [None]
  - Anxiety [Recovered/Resolved]
  - Drug dependence [Recovered/Resolved]
